FAERS Safety Report 7394298-8 (Version None)
Quarter: 2011Q1

REPORT INFORMATION
  Report Type: 
  Country: None (occurrence: None)
  Receive Date: 20110325
  Receipt Date: 20110310
  Transmission Date: 20110831
  Serious: Yes (Other)
  Sender: FDA-Public Use
  Company Number: AUR-APL-2011-00966

PATIENT
  Age: 42 Year
  Sex: Female

DRUGS (3)
  1. METFORMIN [Suspect]
     Indication: DIABETES MELLITUS MANAGEMENT
     Dosage: 550MG-TID; (2ND TRIMESTER)
  2. BETAMETHASONE [Suspect]
     Indication: MATERNAL THERAPY TO ENHANCE FOETAL LUNG MATURITY
     Dosage: 12 MG-DAILY-INTRAVENOUS; (3RD TRIMESTER)
     Route: 042
  3. INSULIN [Suspect]
     Indication: DIABETES MELLITUS MANAGEMENT
     Dosage: 8DF-DAILY

REACTIONS (5)
  - METABOLIC ACIDOSIS [None]
  - POLYHYDRAMNIOS [None]
  - DRUG EXPOSURE DURING PREGNANCY [None]
  - DIABETIC KETOACIDOSIS [None]
  - CAESAREAN SECTION [None]
